FAERS Safety Report 8138457-5 (Version None)
Quarter: 2012Q1

REPORT INFORMATION
  Report Type: 
  Country: None (occurrence: None)
  Receive Date: 20120215
  Receipt Date: 20120203
  Transmission Date: 20120608
  Serious: Yes (Death)
  Sender: FDA-Public Use
  Company Number: US-ROCHE-1039749

PATIENT
  Age: 92 Year
  Sex: Male

DRUGS (1)
  1. RANIBIZUMAB [Suspect]
     Indication: DIABETIC RETINAL OEDEMA
     Dosage: DATE OF LAST DOSE PRIOR TO SAE: 07/NOV/2011
     Route: 050
     Dates: start: 20100913

REACTIONS (1)
  - DEATH [None]
